FAERS Safety Report 20822667 (Version 3)
Quarter: 2023Q2

REPORT INFORMATION
  Report Type: Spontaneous
  Country: US (occurrence: US)
  Receive Date: 20220512
  Receipt Date: 20230414
  Transmission Date: 20230721
  Serious: No
  Sender: FDA-Public Use
  Company Number: US-PFIZER INC-202200551519

PATIENT
  Age: 66 Year
  Sex: Male

DRUGS (3)
  1. INLYTA [Suspect]
     Active Substance: AXITINIB
     Indication: Renal cancer
     Dosage: 5 MG
  2. INLYTA [Suspect]
     Active Substance: AXITINIB
     Dosage: TAKE 3 TABLETS BY MOUTH EVERY 12 HOURS. TAKE AT EVENLY SPACED INTERVALS
     Route: 048
  3. INLYTA [Suspect]
     Active Substance: AXITINIB
     Dosage: TAKE 2 TABLETS BY MOUTH EVERY 12 HOURS
     Route: 048

REACTIONS (3)
  - Laryngitis [Unknown]
  - Aphonia [Unknown]
  - Dysphonia [Unknown]
